FAERS Safety Report 8574598-6 (Version None)
Quarter: 2012Q3

REPORT INFORMATION
  Report Type: 
  Country: None (occurrence: None)
  Receive Date: 20120806
  Receipt Date: 20120723
  Transmission Date: 20120928
  Serious: Yes (Other)
  Sender: FDA-Public Use
  Company Number: PT-009507513-2012SP010379

PATIENT

DRUGS (1)
  1. NOMEGESTROL ACETATE/ESTRADIOL [Suspect]
     Dosage: UNK UNK, UNKNOWN
     Route: 065
     Dates: start: 20120219

REACTIONS (6)
  - CHEST DISCOMFORT [None]
  - ABORTION SPONTANEOUS [None]
  - HEADACHE [None]
  - MENSTRUAL DISORDER [None]
  - METRORRHAGIA [None]
  - UNINTENDED PREGNANCY [None]
